FAERS Safety Report 13507380 (Version 1)
Quarter: 2017Q2

REPORT INFORMATION
  Report Type: Report from Study
  Country: None (occurrence: US)
  Receive Date: 20170503
  Receipt Date: 20170503
  Transmission Date: 20170830
  Serious: Yes (Hospitalization, Other)
  Sender: FDA-Public Use
  Company Number: US-ABBVIE-17K-163-1904612-00

PATIENT
  Age: 56 Year
  Sex: Female

DRUGS (1)
  1. HUMIRA [Suspect]
     Active Substance: ADALIMUMAB
     Indication: RHEUMATOID ARTHRITIS
     Route: 058
     Dates: start: 2014, end: 201702

REACTIONS (7)
  - Renal failure [Recovering/Resolving]
  - Hypophagia [Recovered/Resolved]
  - Uterine leiomyoma [Recovered/Resolved]
  - Urinary tract infection [Recovered/Resolved]
  - Back pain [Recovering/Resolving]
  - Haemorrhage [Recovering/Resolving]
  - Pyrexia [Recovered/Resolved]

NARRATIVE: CASE EVENT DATE: 201702
